FAERS Safety Report 7583386-9 (Version None)
Quarter: 2011Q2

REPORT INFORMATION
  Report Type: 
  Country: None (occurrence: None)
  Receive Date: 20110623
  Receipt Date: 20110608
  Transmission Date: 20111010
  Serious: Yes (Other)
  Sender: FDA-Public Use
  Company Number: 917210

PATIENT
  Age: 68 Year
  Sex: Female
  Weight: 71 kg

DRUGS (7)
  1. BUPIVACAINE HCL [Concomitant]
  2. LEVOTHYROXINE SODIUM [Concomitant]
  3. VYTORIN [Concomitant]
  4. ACTONEL [Concomitant]
  5. MORPHINE SULFATE [Suspect]
     Indication: POSTOPERATIVE ANALGESIA
     Dosage: ONE-OFF-DOSE 200 MCG, INTRATHECAL
     Route: 037
     Dates: start: 20110510, end: 20110510
  6. IRBESARTAN + HYDROCHLOROTHIAZIDE [Concomitant]
  7. METFORMIN HCL [Concomitant]

REACTIONS (1)
  - HYPOTENSION [None]
